FAERS Safety Report 4534156-7 (Version None)
Quarter: 2004Q4

REPORT INFORMATION
  Report Type: 
  Country: None (occurrence: None)
  Receive Date: 20041221
  Receipt Date: 20041221
  Transmission Date: 20050328
  Serious: Yes (Life-Threatening, Hospitalization)
  Sender: FDA-Public Use
  Company Number: None

PATIENT
  Age: 6 Year
  Sex: Male
  Weight: 15 kg

DRUGS (1)
  1. MOTRIN [Suspect]
     Indication: PYREXIA
     Dosage: PER AGE

REACTIONS (5)
  - APHAGIA [None]
  - DERMATITIS EXFOLIATIVE [None]
  - ORAL MUCOSAL BLISTERING [None]
  - PAIN [None]
  - RASH SCALY [None]
